FAERS Safety Report 11656426 (Version 1)
Quarter: 2015Q4

REPORT INFORMATION
  Report Type: Spontaneous
  Country: US (occurrence: US)
  Receive Date: 20151023
  Receipt Date: 20151023
  Transmission Date: 20160304
  Serious: Yes (Death, Other)
  Sender: FDA-Public Use
  Company Number: US-GILEAD-2015-0177408

PATIENT

DRUGS (4)
  1. CAYSTON [Suspect]
     Active Substance: AZTREONAM
     Indication: PSEUDOMONAS INFECTION
     Dosage: UNK
     Route: 065
  2. COLISTIN [Suspect]
     Active Substance: COLISTIN
     Indication: PSEUDOMONAS INFECTION
     Dosage: UNK
     Route: 065
  3. CAYSTON [Suspect]
     Active Substance: AZTREONAM
     Indication: INFECTION
  4. COLISTIN [Suspect]
     Active Substance: COLISTIN
     Indication: INFECTION

REACTIONS (1)
  - Drug ineffective [Fatal]
